FAERS Safety Report 20796765 (Version 8)
Quarter: 2022Q4

REPORT INFORMATION
  Report Type: Report from Study
  Country: US (occurrence: US)
  Receive Date: 20220506
  Receipt Date: 20221008
  Transmission Date: 20230112
  Serious: Yes (Hospitalization, Other)
  Sender: FDA-Public Use
  Company Number: US-NOVARTISPH-NVSC2022US103411

PATIENT
  Age: 50 Year
  Sex: Female

DRUGS (3)
  1. ENTRESTO [Suspect]
     Active Substance: SACUBITRIL\VALSARTAN
     Indication: Cardiac failure
     Dosage: UNK
     Route: 065
     Dates: start: 202201
  2. ENTRESTO [Suspect]
     Active Substance: SACUBITRIL\VALSARTAN
     Dosage: 1 DOSAGE FORM, BID (24/26 MG) (DISPERSIBLE TABLET)
     Route: 048
     Dates: start: 202204
  3. ENTRESTO [Suspect]
     Active Substance: SACUBITRIL\VALSARTAN
     Dosage: 1 DOSAGE FORM, BID
     Route: 048

REACTIONS (29)
  - Atrial fibrillation [Unknown]
  - Eating disorder [Unknown]
  - Memory impairment [Unknown]
  - Dyspnoea [Recovering/Resolving]
  - Heart rate increased [Unknown]
  - Hunger [Unknown]
  - Somnolence [Unknown]
  - Peripheral swelling [Unknown]
  - Eye swelling [Unknown]
  - Weight decreased [Unknown]
  - Gait disturbance [Unknown]
  - Cholelithiasis [Unknown]
  - Nasopharyngitis [Unknown]
  - Abdominal pain [Unknown]
  - Feeding disorder [Unknown]
  - Flatulence [Unknown]
  - Weight bearing difficulty [Unknown]
  - Abdominal distension [Unknown]
  - Fall [Unknown]
  - Periorbital swelling [Unknown]
  - Sinus disorder [Unknown]
  - Dark circles under eyes [Unknown]
  - Fluid retention [Unknown]
  - Weight increased [Recovering/Resolving]
  - Rhinorrhoea [Unknown]
  - Hypersensitivity [Unknown]
  - Cough [Unknown]
  - Hypotension [Unknown]
  - Dizziness [Unknown]

NARRATIVE: CASE EVENT DATE: 20220601
